FAERS Safety Report 19496664 (Version 1)
Quarter: 2021Q3

REPORT INFORMATION
  Report Type: Spontaneous
  Country: US (occurrence: US)
  Receive Date: 20210703
  Receipt Date: 20210703
  Transmission Date: 20211014
  Serious: Yes (Disabling)
  Sender: FDA-Public Use
  Company Number: None

PATIENT
  Age: 73 Year
  Sex: Female
  Weight: 50.85 kg

DRUGS (7)
  1. GLUCOSAMINE?CHRON [Concomitant]
  2. TRESIBA [Concomitant]
     Active Substance: INSULIN DEGLUDEC
  3. SELENIUM [Concomitant]
     Active Substance: SELENIUM
  4. PROLIA [Suspect]
     Active Substance: DENOSUMAB
     Indication: OSTEOPOROSIS
     Dosage: ?          OTHER STRENGTH:NORMAL FOR INJECTI;QUANTITY:1 INJECTION(S);OTHER FREQUENCY:ONCE EVERY SIX MON;?
     Route: 058
     Dates: start: 20210323, end: 20210323
  5. INSULIN?FIASCO [Concomitant]
  6. CALCIUM [Concomitant]
     Active Substance: CALCIUM
  7. DHA [Concomitant]
     Active Substance: DIETARY SUPPLEMENT

REACTIONS (6)
  - Nasopharyngitis [None]
  - Pruritus [None]
  - Myalgia [None]
  - Cough [None]
  - Blood glucose increased [None]
  - Rash [None]

NARRATIVE: CASE EVENT DATE: 20210323
